FAERS Safety Report 7528077-5 (Version None)
Quarter: 2011Q2

REPORT INFORMATION
  Report Type: 
  Country: None (occurrence: None)
  Receive Date: 20110607
  Receipt Date: 20110519
  Transmission Date: 20111010
  Serious: Yes (Other)
  Sender: FDA-Public Use
  Company Number: US-BAYER-201030114NA

PATIENT
  Age: 23 Year
  Sex: Female
  Weight: 89.796 kg

DRUGS (11)
  1. TOPAMAX [Concomitant]
  2. YAZ [Suspect]
     Indication: PREMENSTRUAL SYNDROME
     Dosage: UNK
     Dates: start: 20061101, end: 20070801
  3. XANAX [Concomitant]
  4. NAPROXEN [Concomitant]
     Dosage: UNK
     Dates: start: 20061102
  5. INDERAL [Concomitant]
  6. YAZ [Suspect]
  7. MIDRIN [Concomitant]
     Indication: MIGRAINE
     Dosage: UNK
     Route: 048
     Dates: start: 20060101
  8. TORADOL [Concomitant]
  9. NAPROXEN [Concomitant]
     Dosage: UNK
     Dates: start: 20070815
  10. PROZAC [Concomitant]
  11. PROPRANOLOL [Concomitant]
     Dosage: UNK
     Route: 048
     Dates: start: 20060101

REACTIONS (1)
  - CEREBROVASCULAR ACCIDENT [None]
